FAERS Safety Report 8048337-1 (Version None)
Quarter: 2012Q1

REPORT INFORMATION
  Report Type: 
  Country: None (occurrence: None)
  Receive Date: 20120117
  Receipt Date: 20120110
  Transmission Date: 20120608
  Serious: No
  Sender: FDA-Public Use
  Company Number: US-PFIZER INC-2012008022

PATIENT
  Sex: Male

DRUGS (2)
  1. CABERGOLINE [Concomitant]
     Dosage: 0.5 MG
     Route: 048
  2. GENOTROPIN [Suspect]
     Dosage: 1 INJECTION DAILY
     Route: 058

REACTIONS (1)
  - INJECTION SITE REACTION [None]
